FAERS Safety Report 5248063-8 (Version None)
Quarter: 2007Q1

REPORT INFORMATION
  Report Type: 
  Country: None (occurrence: None)
  Receive Date: 20070222
  Receipt Date: 20070205
  Transmission Date: 20070707
  Serious: Yes (Death)
  Sender: FDA-Public Use
  Company Number: 8020891

PATIENT
  Age: 29 Year
  Sex: Male

DRUGS (2)
  1. KEPPRA [Suspect]
     Dosage: 750 MG 2/D PO
     Route: 048
     Dates: start: 20060801, end: 20060903
  2. VALPROATE SODIUM [Concomitant]

REACTIONS (3)
  - DRUG DOSE OMISSION [None]
  - SUDDEN UNEXPLAINED DEATH IN EPILEPSY [None]
  - TREATMENT NONCOMPLIANCE [None]
